FAERS Safety Report 5916204-2 (Version None)
Quarter: 2008Q4

REPORT INFORMATION
  Report Type: 
  Country: None (occurrence: None)
  Receive Date: 20081013
  Receipt Date: 20080930
  Transmission Date: 20090506
  Serious: Yes (Death, Life-Threatening, Hospitalization)
  Sender: FDA-Public Use
  Company Number: DE-ROCHE-585158

PATIENT
  Sex: Male

DRUGS (10)
  1. CELLCEPT [Suspect]
     Route: 048
     Dates: start: 20070901, end: 20080401
  2. CYCLOSPORINE [Concomitant]
     Route: 048
     Dates: start: 20070901, end: 20071001
  3. TACROLIMUS [Concomitant]
     Route: 048
     Dates: start: 20071001, end: 20080101
  4. SIROLIMUS [Concomitant]
     Route: 048
     Dates: start: 20080101, end: 20080401
  5. PREDNISOLON [Concomitant]
  6. BISOPROLOL [Concomitant]
  7. SIMVASTATIN [Concomitant]
  8. ASPIRIN [Concomitant]
  9. PANTOZOL [Concomitant]
     Dosage: DRUG REPORTED: PANTAZOL
  10. MINOXIDINE [Concomitant]
     Dosage: DRUG REPORTED: MONOXIDIN

REACTIONS (4)
  - CHOLESTASIS [None]
  - HEPATOTOXICITY [None]
  - SEPSIS [None]
  - SYSTEMIC INFLAMMATORY RESPONSE SYNDROME [None]
